FAERS Safety Report 5482225-X (Version None)
Quarter: 2007Q4

REPORT INFORMATION
  Report Type: 
  Country: None (occurrence: None)
  Receive Date: 20071011
  Receipt Date: 20071005
  Transmission Date: 20080405
  Serious: Yes (Hospitalization)
  Sender: FDA-Public Use
  Company Number: DE-BRISTOL-MYERS SQUIBB COMPANY-13893011

PATIENT
  Age: 67 Year
  Sex: Female
  Weight: 90 kg

DRUGS (1)
  1. HYDROXYUREA [Suspect]
     Indication: MYELODYSPLASTIC SYNDROME

REACTIONS (2)
  - ERYTHEMA [None]
  - PANNICULITIS [None]
